FAERS Safety Report 12390984 (Version 2)
Quarter: 2016Q2

REPORT INFORMATION
  Report Type: Report from Study
  Country: US (occurrence: US)
  Receive Date: 20160520
  Receipt Date: 20160527
  Transmission Date: 20160815
  Serious: Yes (Hospitalization, Other)
  Sender: FDA-Public Use
  Company Number: US-ABBVIE-16K-163-1628715-00

PATIENT
  Age: 61 Year
  Sex: Female

DRUGS (1)
  1. HUMIRA [Suspect]
     Active Substance: ADALIMUMAB
     Indication: PSORIASIS
     Route: 058
     Dates: start: 201603

REACTIONS (8)
  - Blood pressure increased [Unknown]
  - Vascular occlusion [Recovered/Resolved]
  - Skin discolouration [Recovered/Resolved]
  - Fungal skin infection [Unknown]
  - Drug dose omission [Unknown]
  - Pain in extremity [Recovered/Resolved]
  - Blood sodium decreased [Unknown]
  - Psoriasis [Recovering/Resolving]

NARRATIVE: CASE EVENT DATE: 2016
